FAERS Safety Report 25682548 (Version 1)
Quarter: 2025Q3

REPORT INFORMATION
  Report Type: Spontaneous
  Country: EU (occurrence: EU)
  Receive Date: 20250814
  Receipt Date: 20250814
  Transmission Date: 20251020
  Serious: Yes (Hospitalization)
  Sender: NOVARTIS
  Company Number: None

PATIENT
  Age: 75 Year
  Sex: Female
  Weight: 77 kg

DRUGS (15)
  1. TEGRETOL [Interacting]
     Active Substance: CARBAMAZEPINE
     Indication: Trigeminal neuralgia
     Dosage: 200 MG, Q12H FORME ? LIB?RATION PROLONG?E (EXTENDED-RELEASE FORM)
     Route: 048
     Dates: start: 20090101, end: 20250710
  2. TEGRETOL [Interacting]
     Active Substance: CARBAMAZEPINE
     Dosage: 400 MG, Q8H (FORME ? LIB?RATION IMM?DIATE)
     Route: 048
     Dates: start: 20250710, end: 20250711
  3. RIVOTRIL [Interacting]
     Active Substance: CLONAZEPAM
     Indication: Trigeminal neuralgia
     Dosage: 0.5 MG, Q12H
     Route: 042
     Dates: start: 20250715, end: 20250716
  4. RIVOTRIL [Interacting]
     Active Substance: CLONAZEPAM
     Dosage: 1.5 MG, Q24H
     Route: 042
     Dates: start: 20250716, end: 20250717
  5. RIVOTRIL [Interacting]
     Active Substance: CLONAZEPAM
     Dosage: 2 MG, Q24H
     Route: 042
     Dates: start: 20250717, end: 20250722
  6. RIVOTRIL [Interacting]
     Active Substance: CLONAZEPAM
     Dosage: 9 DRP, QD
     Route: 048
     Dates: start: 20250723, end: 20250723
  7. XARELTO [Concomitant]
     Active Substance: RIVAROXABAN
     Indication: Atrial fibrillation
     Dosage: 20 MG, QD
     Route: 048
  8. NEBIVOLOL [Concomitant]
     Active Substance: NEBIVOLOL
     Indication: Atrial fibrillation
     Dosage: 5 MG, Q12H (COMPRIM? QUADRIS?CABLE)
     Route: 048
  9. LIPTRUZET [Concomitant]
     Active Substance: ATORVASTATIN CALCIUM\EZETIMIBE
     Indication: Dyslipidaemia
     Dosage: 1 DOSAGE FORM, QD
     Route: 048
  10. JARDIANCE [Concomitant]
     Active Substance: EMPAGLIFLOZIN
     Indication: Cardiac failure
     Dosage: 10 MG, QD
     Route: 048
  11. INSPRA [Concomitant]
     Active Substance: EPLERENONE
     Indication: Cardiac failure
     Dosage: 25 MG, QD
     Route: 048
  12. ENTRESTO [Concomitant]
     Active Substance: SACUBITRIL\VALSARTAN
     Indication: Cardiac failure
     Dosage: 1 DOSAGE FORM, Q12H
     Route: 048
  13. LEVOTHYROXINE [Concomitant]
     Active Substance: LEVOTHYROXINE
     Indication: Hypothyroidism
     Dosage: 75 MG, QD (COMPRIM? S?CABLE)
     Route: 048
  14. ASPIRIN [Concomitant]
     Active Substance: ASPIRIN
     Indication: Cardiovascular event prophylaxis
     Dosage: 75 MG, QD
     Route: 048
  15. PANTOPRAZOLE [Concomitant]
     Active Substance: PANTOPRAZOLE
     Indication: Gastrooesophageal reflux disease
     Dosage: 40 MG, QD
     Route: 048

REACTIONS (5)
  - Somnolence [Recovered/Resolved]
  - Vomiting [Recovered/Resolved]
  - Hypertensive crisis [Recovered/Resolved]
  - Toxicity to various agents [Recovered/Resolved]
  - Potentiating drug interaction [Recovered/Resolved]

NARRATIVE: CASE EVENT DATE: 20250718
